FAERS Safety Report 26107096 (Version 2)
Quarter: 2025Q4

REPORT INFORMATION
  Report Type: Spontaneous
  Country: GB (occurrence: GB)
  Receive Date: 20251201
  Receipt Date: 20251205
  Transmission Date: 20260117
  Serious: Yes (Life-Threatening)
  Sender: NOVARTIS
  Company Number: GB-002147023-NVSC2025GB183959

PATIENT
  Sex: Male

DRUGS (1)
  1. TEGRETOL [Suspect]
     Active Substance: CARBAMAZEPINE
     Indication: Epilepsy
     Dosage: 700 MG, BID (HE SPLITS ONE OF THE 200MG TABLETS)
     Route: 065

REACTIONS (3)
  - Seizure [Unknown]
  - Feeling abnormal [Unknown]
  - Product availability issue [Unknown]
